FAERS Safety Report 6820084-0 (Version None)
Quarter: 2010Q3

REPORT INFORMATION
  Report Type: 
  Country: None (occurrence: None)
  Receive Date: 20100707
  Receipt Date: 20100702
  Transmission Date: 20110219
  Serious: Yes (Life-Threatening, Hospitalization)
  Sender: FDA-Public Use
  Company Number: B0663537A

PATIENT
  Sex: Male

DRUGS (6)
  1. AUGMENTIN '125' [Suspect]
     Indication: PRODUCT USED FOR UNKNOWN INDICATION
     Route: 048
     Dates: start: 20100509, end: 20100509
  2. RAMIPRIL [Concomitant]
     Dosage: 10MG PER DAY
     Route: 065
  3. FUROSEMIDE [Concomitant]
     Dosage: 40MG PER DAY
     Route: 065
  4. DIFFU K [Concomitant]
     Route: 065
  5. PLAVIX [Concomitant]
     Dosage: 75MG PER DAY
     Route: 065
  6. OMEPRAZOLE [Concomitant]
     Route: 065

REACTIONS (6)
  - ANAPHYLACTIC SHOCK [None]
  - FALL [None]
  - HYPOTENSION [None]
  - LOSS OF CONSCIOUSNESS [None]
  - TROPONIN INCREASED [None]
  - URTICARIA [None]
